FAERS Safety Report 8742489 (Version 2)
Quarter: 2013Q4

REPORT INFORMATION
  Report Type: Spontaneous
  Country: US (occurrence: US)
  Receive Date: 20120824
  Receipt Date: 20131031
  Transmission Date: 20140711
  Serious: No
  Sender: FDA-Public Use
  Company Number: US-009507513-2012SP028706

PATIENT
  Age: 46 Year
  Sex: Male

DRUGS (3)
  1. PEG-INTRON [Suspect]
     Indication: HEPATITIS
     Dosage: 150 ?G, QW
     Dates: start: 20120511
  2. RIBASPHERE [Suspect]
  3. ANTIVIRAL (UNSPECIFIED) [Concomitant]

REACTIONS (3)
  - Injection site rash [Not Recovered/Not Resolved]
  - Injection site pain [Not Recovered/Not Resolved]
  - Injection site mass [Not Recovered/Not Resolved]
